FAERS Safety Report 6560460-7 (Version None)
Quarter: 2010Q1

REPORT INFORMATION
  Report Type: 
  Country: None (occurrence: None)
  Receive Date: 20100129
  Receipt Date: 20050216
  Transmission Date: 20100710
  Serious: No
  Sender: FDA-Public Use
  Company Number: US-ALLERGAN-200501411

PATIENT
  Age: 61 Year
  Sex: Female
  Weight: 57.727 kg

DRUGS (2)
  1. BOTOX COSMETIC [Suspect]
     Indication: SKIN WRINKLING
     Dosage: 25UNITS, SINGLE
     Route: 030
     Dates: start: 20050211
  2. TCA (20%) [Suspect]
     Indication: SKIN COSMETIC PROCEDURE
     Dates: start: 20050211

REACTIONS (1)
  - INJECTION SITE PAIN [None]
